FAERS Safety Report 5799139-8 (Version None)
Quarter: 2008Q3

REPORT INFORMATION
  Report Type: 
  Country: None (occurrence: None)
  Receive Date: 20080702
  Receipt Date: 20080624
  Transmission Date: 20090109
  Serious: Yes (Other)
  Sender: FDA-Public Use
  Company Number: US-PFIZER INC-2007099802

PATIENT
  Sex: Female
  Weight: 96.8 kg

DRUGS (11)
  1. CHANTIX [Suspect]
     Indication: SMOKING CESSATION THERAPY
     Route: 048
     Dates: start: 20071116, end: 20071119
  2. CHANTIX [Suspect]
     Indication: CHRONIC OBSTRUCTIVE PULMONARY DISEASE
  3. XANAX [Concomitant]
  4. HYDRALAZINE HCL [Concomitant]
  5. LISINOPRIL [Concomitant]
  6. PLENDIL [Concomitant]
  7. COZAAR [Concomitant]
  8. WARFARIN SODIUM [Concomitant]
  9. DIGITEK [Concomitant]
  10. TOPROL-XL [Concomitant]
  11. NEXIUM [Concomitant]

REACTIONS (6)
  - ATRIAL FIBRILLATION [None]
  - CARDIAC PACEMAKER INSERTION [None]
  - DYSPNOEA [None]
  - MALAISE [None]
  - NASOPHARYNGITIS [None]
  - SOMNOLENCE [None]
